FAERS Safety Report 14182224 (Version 1)
Quarter: 2017Q4

REPORT INFORMATION
  Report Type: Spontaneous
  Country: CH (occurrence: CH)
  Receive Date: 20171113
  Receipt Date: 20171113
  Transmission Date: 20180321
  Serious: Yes (Death, Hospitalization, Other)
  Sender: FDA-Public Use
  Company Number: CH-ROCHE-2019040

PATIENT
  Age: 5 Year
  Sex: Male

DRUGS (4)
  1. ACTEMRA [Suspect]
     Active Substance: TOCILIZUMAB
     Route: 042
     Dates: start: 20160216
  2. INOTUZUMAB OZOGAMICIN [Suspect]
     Active Substance: INOTUZUMAB OZOGAMICIN
     Indication: NEOPLASM MALIGNANT
     Route: 065
     Dates: start: 20160913, end: 20160927
  3. TISAGENLECLEUCEL. [Suspect]
     Active Substance: TISAGENLECLEUCEL
     Indication: B-CELL TYPE ACUTE LEUKAEMIA
     Dosage: DOSAGE IS UNCERTAIN.
     Route: 041
     Dates: start: 20160209
  4. ACTEMRA [Suspect]
     Active Substance: TOCILIZUMAB
     Indication: CYTOKINE RELEASE SYNDROME
     Route: 042
     Dates: start: 20160214

REACTIONS (9)
  - Platelet count decreased [Recovered/Resolved]
  - White blood cell count decreased [Recovered/Resolved]
  - Acute lymphocytic leukaemia [Fatal]
  - Lymphocyte count decreased [Recovered/Resolved]
  - Lipase increased [Not Recovered/Not Resolved]
  - Blood fibrinogen decreased [Recovered/Resolved]
  - Neutrophil count decreased [Recovered/Resolved]
  - Pancreatitis [Not Recovered/Not Resolved]
  - Blood bilirubin increased [Recovered/Resolved]

NARRATIVE: CASE EVENT DATE: 20160209
